FAERS Safety Report 18133542 (Version 3)
Quarter: 2020Q4

REPORT INFORMATION
  Report Type: Spontaneous
  Country: JP (occurrence: JP)
  Receive Date: 20200811
  Receipt Date: 20201201
  Transmission Date: 20210113
  Serious: Yes (Hospitalization, Other)
  Sender: FDA-Public Use
  Company Number: NVSJ2020JP007548

PATIENT
  Age: 68 Year
  Sex: Male

DRUGS (28)
  1. ANTITHYMOCYTE IMMUNOGLOBULIN (RABBIT) [Suspect]
     Active Substance: LAPINE T-LYMPHOCYTE IMMUNE GLOBULIN
     Indication: PRODUCT USED FOR UNKNOWN INDICATION
     Dosage: 3 MG/KG
     Route: 065
  2. RED BLOOD CELLS, CONCENTRATED [Concomitant]
     Active Substance: HUMAN RED BLOOD CELL
     Indication: PRODUCT USED FOR UNKNOWN INDICATION
     Dosage: UNK
     Route: 065
  3. REVOLADE TAB [Suspect]
     Active Substance: ELTROMBOPAG
     Dosage: 100 MG
     Route: 048
     Dates: end: 201912
  4. CYCLOSPORINE. [Suspect]
     Active Substance: CYCLOSPORINE
     Dosage: 700 MG
     Route: 048
  5. FILGRASTIM [Concomitant]
     Active Substance: FILGRASTIM
     Indication: PRODUCT USED FOR UNKNOWN INDICATION
     Dosage: 150 UG
     Route: 065
  6. REVOLADE TAB [Suspect]
     Active Substance: ELTROMBOPAG
     Dosage: UNK
     Route: 048
  7. METENOLONE ACETATE [Concomitant]
     Active Substance: METHENOLONE ACETATE
     Indication: PRODUCT USED FOR UNKNOWN INDICATION
     Dosage: 10 MG
     Route: 065
  8. METENOLONE ACETATE [Concomitant]
     Active Substance: METHENOLONE ACETATE
     Dosage: 20 MG
     Route: 065
  9. DANAZOL. [Concomitant]
     Active Substance: DANAZOL
     Indication: PRODUCT USED FOR UNKNOWN INDICATION
     Dosage: 100 MG
     Route: 065
  10. DANAZOL. [Concomitant]
     Active Substance: DANAZOL
     Dosage: 200 MG
     Route: 065
  11. REVOLADE TAB [Suspect]
     Active Substance: ELTROMBOPAG
     Indication: APLASTIC ANAEMIA
     Dosage: 12.5 MG
     Route: 048
     Dates: start: 201902
  12. CYCLOSPORINE. [Suspect]
     Active Substance: CYCLOSPORINE
     Dosage: 170 MG
     Route: 048
  13. TELMISARTAN. [Concomitant]
     Active Substance: TELMISARTAN
     Indication: PRODUCT USED FOR UNKNOWN INDICATION
     Dosage: 20 MG
     Route: 065
  14. DANAZOL. [Concomitant]
     Active Substance: DANAZOL
     Dosage: 400 MG
     Route: 065
  15. PLATELETS [Concomitant]
     Active Substance: HUMAN PLATELET, ALLOGENIC
     Indication: PRODUCT USED FOR UNKNOWN INDICATION
     Dosage: UNK
     Route: 065
  16. FILGRASTIM [Concomitant]
     Active Substance: FILGRASTIM
     Dosage: UNK
     Route: 065
  17. ROMIPLOSTIM [Concomitant]
     Active Substance: ROMIPLOSTIM
     Dosage: 1000 UG, QW
     Route: 065
  18. REVOLADE TAB [Suspect]
     Active Substance: ELTROMBOPAG
     Dosage: 75 MG
     Route: 048
  19. ESOMEPRAZOLE MAGNESIUM. [Concomitant]
     Active Substance: ESOMEPRAZOLE MAGNESIUM
     Indication: PRODUCT USED FOR UNKNOWN INDICATION
     Dosage: 10 MG
     Route: 065
  20. CYCLOSPORINE. [Suspect]
     Active Substance: CYCLOSPORINE
     Dosage: 170 MG
     Route: 048
  21. CYCLOSPORINE. [Suspect]
     Active Substance: CYCLOSPORINE
     Dosage: 50-150 MG
     Route: 048
  22. METENOLONE ACETATE [Concomitant]
     Active Substance: METHENOLONE ACETATE
     Dosage: 30 MG
     Route: 065
  23. PREDNISOLONE. [Concomitant]
     Active Substance: PREDNISOLONE
     Indication: PRODUCT USED FOR UNKNOWN INDICATION
     Dosage: UNK
     Route: 065
  24. CYCLOSPORINE. [Suspect]
     Active Substance: CYCLOSPORINE
     Indication: APLASTIC ANAEMIA
     Dosage: 50 MG
     Route: 048
     Dates: start: 201806
  25. CYCLOSPORINE. [Suspect]
     Active Substance: CYCLOSPORINE
     Dosage: 200 MG
     Route: 048
  26. ROMIPLOSTIM [Concomitant]
     Active Substance: ROMIPLOSTIM
     Indication: PRODUCT USED FOR UNKNOWN INDICATION
     Dosage: 500 UG, QW
     Route: 065
  27. ROMIPLOSTIM [Concomitant]
     Active Substance: ROMIPLOSTIM
     Dosage: 750 UG, QW
     Route: 065
  28. ROMIPLOSTIM [Concomitant]
     Active Substance: ROMIPLOSTIM
     Dosage: 750 UG, QW
     Route: 065

REACTIONS (10)
  - Oral herpes [Unknown]
  - Urinary tract infection bacterial [Unknown]
  - Pyrexia [Unknown]
  - Blood creatinine increased [Not Recovered/Not Resolved]
  - Cytomegalovirus viraemia [Unknown]
  - Concomitant disease aggravated [Unknown]
  - Headache [Unknown]
  - Product use in unapproved indication [Unknown]
  - Pneumothorax [Unknown]
  - Enterobacter bacteraemia [Unknown]

NARRATIVE: CASE EVENT DATE: 201904
